FAERS Safety Report 9028200 (Version 3)
Quarter: 2013Q2

REPORT INFORMATION
  Report Type: Report from Study
  Country: FR (occurrence: FR)
  Receive Date: 20130123
  Receipt Date: 20130415
  Transmission Date: 20140414
  Serious: Yes (Hospitalization)
  Sender: FDA-Public Use
  Company Number: PHHY2013FR005502

PATIENT
  Age: 87 Year
  Sex: Female
  Weight: 50 kg

DRUGS (16)
  1. ACLASTA/ZOLEDRONATE [Suspect]
     Indication: OSTEOPOROSIS
     Dosage: UNK
     Route: 042
     Dates: start: 20111122
  2. PRESERVISION LUTEIN [Concomitant]
     Indication: MEDICAL DIET
     Dosage: UNK
     Dates: start: 2004
  3. SERETIDE [Concomitant]
     Dosage: UNK
     Dates: start: 2007
  4. RIVOTRIL [Concomitant]
     Dosage: UNK
     Dates: start: 2007, end: 201204
  5. KARDEGIC [Concomitant]
     Dosage: UNK
     Dates: start: 2007
  6. KENZEN [Concomitant]
     Dosage: UNK
     Dates: start: 2011, end: 201112
  7. TAREG [Concomitant]
     Dosage: UNK
     Dates: start: 2011, end: 2012
  8. FIXICAL [Concomitant]
     Dosage: UNK
  9. UVEDOSE [Concomitant]
     Dosage: UNK
  10. VITAMIN B12 [Concomitant]
     Dosage: UNK
  11. OROPERIDYS [Concomitant]
     Dosage: UNK
     Dates: start: 2012
  12. MONOCRIXO [Concomitant]
     Dosage: UNK
     Dates: start: 2012
  13. DOLIPRANE [Concomitant]
     Dosage: UNK
  14. BROMAZEPAM [Concomitant]
     Dosage: UNK
  15. DAFALGAN [Concomitant]
     Dosage: UNK
  16. VALSARTAN [Concomitant]
     Dosage: UNK

REACTIONS (18)
  - Jaw disorder [Unknown]
  - Toothache [Unknown]
  - Nasal obstruction [Unknown]
  - Bronchitis [Unknown]
  - Chest pain [Unknown]
  - Sinusitis [Recovered/Resolved]
  - General physical health deterioration [Recovered/Resolved]
  - Nasopharyngitis [Unknown]
  - Headache [Recovered/Resolved]
  - Nausea [Unknown]
  - Decreased appetite [Unknown]
  - Vomiting [Unknown]
  - Blood pressure increased [Recovered/Resolved]
  - Cognitive disorder [Unknown]
  - Lymphocyte count decreased [Unknown]
  - Oesophageal dilatation [Unknown]
  - Gastrooesophageal reflux disease [Unknown]
  - Anxiety [Unknown]
